FAERS Safety Report 7560879-1 (Version None)
Quarter: 2011Q2

REPORT INFORMATION
  Report Type: 
  Country: None (occurrence: None)
  Receive Date: 20110621
  Receipt Date: 20110406
  Transmission Date: 20111010
  Serious: No
  Sender: FDA-Public Use
  Company Number: US-ASTRAZENECA-2011SE19681

PATIENT
  Sex: Male

DRUGS (1)
  1. ATACAND [Suspect]
     Route: 048

REACTIONS (4)
  - BRONCHITIS [None]
  - ASTHMA [None]
  - WRONG TECHNIQUE IN DRUG USAGE PROCESS [None]
  - ERYTHEMA [None]
